FAERS Safety Report 17255265 (Version 7)
Quarter: 2021Q2

REPORT INFORMATION
  Report Type: Spontaneous
  Country: GB (occurrence: GB)
  Receive Date: 20200110
  Receipt Date: 20210611
  Transmission Date: 20210716
  Serious: Yes (Hospitalization, Other)
  Sender: FDA-Public Use
  Company Number: GB-ACCORD-008245

PATIENT
  Age: 21 Year
  Sex: Female

DRUGS (19)
  1. PRUCALOPRIDE [Suspect]
     Active Substance: PRUCALOPRIDE
     Indication: PRODUCT USED FOR UNKNOWN INDICATION
     Route: 048
  2. IBUPROFEN. [Concomitant]
     Active Substance: IBUPROFEN
     Indication: ABDOMINAL PAIN
     Dosage: 400 MG, 3/DAY
     Route: 065
  3. TRAMADOL/TRAMADOL HYDROCHLORIDE [Suspect]
     Active Substance: TRAMADOL HYDROCHLORIDE
     Indication: ABDOMINAL PAIN
     Dosage: 50 MG, 3/DAY
     Route: 048
     Dates: start: 200904, end: 200909
  4. PREGABALIN. [Suspect]
     Active Substance: PREGABALIN
     Indication: PRODUCT USED FOR UNKNOWN INDICATION
  5. CYCLIZINE [Suspect]
     Active Substance: CYCLIZINE
     Indication: NAUSEA
     Dosage: 50 MG, 3/DAY, ?8 DOSAGE FORM, 1X/DAY:QD
     Route: 048
  6. OMEPRAZOLE. [Concomitant]
     Active Substance: OMEPRAZOLE
     Indication: DYSPEPSIA
     Dosage: 40 MG, QD
     Route: 065
  7. CODEINE PHOSPHATE/PARACETAMOL [Suspect]
     Active Substance: ACETAMINOPHEN\CODEINE PHOSPHATE
     Indication: PRODUCT USED FOR UNKNOWN INDICATION
     Dosage: 30MG/500MG
     Route: 048
  8. METOCLOPRAMIDE. [Suspect]
     Active Substance: METOCLOPRAMIDE
     Indication: ABDOMINAL PAIN
     Dosage: 10 MG, 3/DAY
  9. TRAMADOL/TRAMADOL HYDROCHLORIDE [Suspect]
     Active Substance: TRAMADOL HYDROCHLORIDE
     Indication: ABDOMINAL PAIN
     Dosage: 100 MG, 4/DAY
     Route: 048
     Dates: start: 200910, end: 200911
  10. CODEINE PHOSPHATE/PARACETAMOL [Suspect]
     Active Substance: ACETAMINOPHEN\CODEINE PHOSPHATE
     Indication: PRODUCT USED FOR UNKNOWN INDICATION
     Dosage: 8 DF, QID
     Route: 048
  11. HYDROCORTISONE. [Concomitant]
     Active Substance: HYDROCORTISONE
     Dosage: 400 MG, QID
     Route: 048
     Dates: start: 200910, end: 200911
  12. SUMATRIPTAN. [Concomitant]
     Active Substance: SUMATRIPTAN
     Indication: MIGRAINE
     Dosage: 50 MG, QD
     Route: 065
  13. AMITRIPTYLINE [Suspect]
     Active Substance: AMITRIPTYLINE
     Indication: PRODUCT USED FOR UNKNOWN INDICATION
     Dosage: AT NIGHT
     Route: 048
  14. BETAHISTINE [Suspect]
     Active Substance: BETAHISTINE
     Indication: PRODUCT USED FOR UNKNOWN INDICATION
     Dosage: 24 MG, 1X/DAY, DOSAGE FORM: UNSPECIFIED
     Route: 048
  15. GABAPENTIN. [Suspect]
     Active Substance: GABAPENTIN
     Indication: PRODUCT USED FOR UNKNOWN INDICATION
     Dosage: 3600 MG, QD
     Route: 048
  16. TRAMADOL/TRAMADOL HYDROCHLORIDE [Suspect]
     Active Substance: TRAMADOL HYDROCHLORIDE
     Indication: ABDOMINAL PAIN
     Route: 065
     Dates: start: 200909, end: 201011
  17. DOMPERIDONE [Suspect]
     Active Substance: DOMPERIDONE
     Indication: PRODUCT USED FOR UNKNOWN INDICATION
     Dosage: UP TO THREE TIMES A DAY
     Route: 048
  18. AMITONE [AMITRIPTYLINE HYDROCHLORIDE] [Suspect]
     Active Substance: AMITRIPTYLINE HYDROCHLORIDE
     Indication: PRODUCT USED FOR UNKNOWN INDICATION
     Dosage: 100 MILLIGRAM, ONCE DAILY (QD),AT NIGHT
     Route: 048
  19. LANSOPRAZOLE. [Concomitant]
     Active Substance: LANSOPRAZOLE
     Route: 048

REACTIONS (10)
  - Abdominal pain [Recovered/Resolved]
  - Headache [Recovered/Resolved]
  - Hyperprolactinaemia [Recovered/Resolved]
  - Pituitary tumour benign [Recovering/Resolving]
  - Adrenal insufficiency [Recovered/Resolved]
  - Vision blurred [Unknown]
  - Dizziness [Recovered/Resolved]
  - Vomiting [Recovered/Resolved]
  - Lethargy [Recovered/Resolved]
  - Secondary adrenocortical insufficiency [Recovered/Resolved]

NARRATIVE: CASE EVENT DATE: 200911
